FAERS Safety Report 10176456 (Version 3)
Quarter: 2014Q2

REPORT INFORMATION
  Report Type: Spontaneous
  Country: ES (occurrence: ES)
  Receive Date: 20140516
  Receipt Date: 20140623
  Transmission Date: 20141212
  Serious: Yes (Hospitalization, Other)
  Sender: FDA-Public Use
  Company Number: ES-ABBVIE-14P-144-1236434-00

PATIENT
  Age: 56 Year
  Sex: Male

DRUGS (6)
  1. HUMIRA [Suspect]
     Indication: SPONDYLITIS
     Route: 058
     Dates: start: 2009
  2. HUMIRA [Suspect]
     Indication: REITER^S SYNDROME
     Route: 058
     Dates: start: 20110317, end: 201312
  3. CRESTOR [Concomitant]
     Indication: PRODUCT USED FOR UNKNOWN INDICATION
  4. AMOXILLINE [Concomitant]
     Indication: PROPHYLAXIS
  5. AMOXILLINE [Concomitant]
     Indication: BIOPSY
  6. METHOTREXATE [Concomitant]
     Indication: PRODUCT USED FOR UNKNOWN INDICATION

REACTIONS (9)
  - Angiocentric lymphoma [Unknown]
  - Hypertransaminasaemia [Unknown]
  - Renal colic [Unknown]
  - Mouth ulceration [Unknown]
  - Oedema peripheral [Unknown]
  - Inflammatory bowel disease [Unknown]
  - Lymphoproliferative disorder [Unknown]
  - Haematuria [Unknown]
  - Epstein-Barr virus infection [Unknown]
